FAERS Safety Report 10056080 (Version 1)
Quarter: 2014Q2

REPORT INFORMATION
  Report Type: Spontaneous
  Country: JP (occurrence: JP)
  Receive Date: 20140403
  Receipt Date: 20140403
  Transmission Date: 20141212
  Serious: Yes (Death)
  Sender: FDA-Public Use
  Company Number: JP-ASTELLAS-2014JP002957

PATIENT
  Age: 45 Year
  Sex: Female

DRUGS (5)
  1. PROGRAF [Suspect]
     Indication: IMMUNOSUPPRESSANT DRUG THERAPY
     Route: 065
  2. PROGRAF [Suspect]
     Route: 065
  3. MYCOPHENOLATE MOFETIL [Concomitant]
     Indication: IMMUNOSUPPRESSANT DRUG THERAPY
     Dosage: 500 MG, UNKNOWN/D
     Route: 065
  4. INTERFERON [Concomitant]
     Indication: HEPATITIS C
     Route: 065
  5. RIBAVIRIN [Concomitant]
     Indication: HEPATITIS C
     Route: 065

REACTIONS (3)
  - Drug ineffective [Unknown]
  - Transplant rejection [Fatal]
  - Liver transplant rejection [Fatal]
